FAERS Safety Report 25535516 (Version 1)
Quarter: 2025Q3

REPORT INFORMATION
  Report Type: Spontaneous
  Country: US (occurrence: US)
  Receive Date: 20250709
  Receipt Date: 20250709
  Transmission Date: 20251020
  Serious: No
  Sender: BOTANIX PHARMACEUTICALS
  Company Number: US-BOTANIX PHARMACEUTICALS-2025BOT00073

PATIENT
  Sex: Female

DRUGS (1)
  1. SOFDRA [Suspect]
     Active Substance: SOFPIRONIUM BROMIDE
     Indication: Hyperhidrosis
     Dosage: APPLY ONE PUMP TO EACH AFFECTED AREA ONCE DAILY
     Route: 061

REACTIONS (2)
  - Blister [Recovering/Resolving]
  - Erythema [Recovering/Resolving]
